FAERS Safety Report 7903065-5 (Version None)
Quarter: 2011Q4

REPORT INFORMATION
  Report Type: 
  Country: None (occurrence: None)
  Receive Date: 20111107
  Receipt Date: 20111026
  Transmission Date: 20120403
  Serious: Yes (Hospitalization)
  Sender: FDA-Public Use
  Company Number: DSA_48074_2011

PATIENT
  Sex: Female

DRUGS (4)
  1. EN (EN-DELORAZEPAM) (NOT SPECIFIED) [Suspect]
     Indication: DEPRESSION
     Dosage: (2 MG, DAILY ORAL)
     Route: 048
     Dates: start: 20110601, end: 20110627
  2. LAMOTRIGINE [Suspect]
     Indication: DEPRESSION
     Dosage: (50 MG, DAILY ORAL)
     Route: 048
     Dates: start: 20110601, end: 20110627
  3. SEROQUEL [Suspect]
     Indication: DEPRESSION
     Dosage: (100 MG, DAILY ORAL)
     Route: 048
     Dates: start: 20110601, end: 20110627
  4. WELLBUTRIN [Suspect]
     Indication: DEPRESSION
     Dosage: (150 MG, DAILY ORAL)
     Route: 048
     Dates: start: 20110601, end: 20110627

REACTIONS (4)
  - SPEECH DISORDER [None]
  - MOTOR DYSFUNCTION [None]
  - VERTIGO [None]
  - HYPOAESTHESIA [None]
